FAERS Safety Report 9267315 (Version 1)
Quarter: 2013Q2

REPORT INFORMATION
  Report Type: Spontaneous
  Country: US (occurrence: US)
  Receive Date: 20130502
  Receipt Date: 20130502
  Transmission Date: 20140414
  Serious: Yes (Disabling, Other)
  Sender: FDA-Public Use
  Company Number: PHEH2013US009604

PATIENT
  Sex: Female

DRUGS (7)
  1. TEKTURNA HCT [Suspect]
     Dosage: UNK MG, UNK
  2. SYNTHROID [Concomitant]
     Dosage: 150 MG, UNK
  3. ACTOS [Concomitant]
     Dosage: 50 MG, UNK
  4. GLYBURIDE [Concomitant]
     Dosage: 10 MG, UNK
  5. CITALOPRAM [Concomitant]
     Dosage: 20 MG, UNK
  6. SEROQUEL [Concomitant]
     Dosage: 50 MG, UNK
  7. PREVACID [Concomitant]
     Dosage: 30 MG, UNK

REACTIONS (4)
  - Obesity [Unknown]
  - Back pain [Unknown]
  - Pain in extremity [Unknown]
  - Bipolar disorder [Unknown]
